FAERS Safety Report 11520087 (Version 1)
Quarter: 2015Q3

REPORT INFORMATION
  Report Type: Spontaneous
  Country: US (occurrence: None)
  Receive Date: 20150917
  Receipt Date: 20150917
  Transmission Date: 20151125
  Serious: Yes (Other)
  Sender: FDA-Public Use
  Company Number: None

PATIENT
  Age: 60 Year
  Sex: Male

DRUGS (1)
  1. ENBREL [Suspect]
     Active Substance: ETANERCEPT
     Indication: RHEUMATOID ARTHRITIS
     Route: 058
     Dates: start: 20150826, end: 20150902

REACTIONS (8)
  - Vision blurred [None]
  - Fatigue [None]
  - Confusional state [None]
  - Oropharyngeal pain [None]
  - Myalgia [None]
  - Nausea [None]
  - Dizziness [None]
  - Pallor [None]

NARRATIVE: CASE EVENT DATE: 201509
